FAERS Safety Report 9345189 (Version 1)
Quarter: 2013Q2

REPORT INFORMATION
  Report Type: Spontaneous
  Country: US (occurrence: US)
  Receive Date: 20130612
  Receipt Date: 20130612
  Transmission Date: 20140414
  Serious: Yes (Other)
  Sender: FDA-Public Use
  Company Number: US-GILEAD-2013-0076787

PATIENT
  Age: 65 Year
  Sex: Female

DRUGS (2)
  1. LETAIRIS [Suspect]
     Indication: PRODUCT USED FOR UNKNOWN INDICATION
     Dosage: 10 MG, QD
     Dates: start: 20100501
  2. TYVASO [Concomitant]

REACTIONS (6)
  - Pharyngeal oedema [Unknown]
  - Dysphagia [Unknown]
  - Gait disturbance [Unknown]
  - Palpitations [Unknown]
  - Palpitations [Unknown]
  - Dizziness [Unknown]
